FAERS Safety Report 24569467 (Version 5)
Quarter: 2025Q1

REPORT INFORMATION
  Report Type: Report from Study
  Country: CO (occurrence: CO)
  Receive Date: 20241031
  Receipt Date: 20250313
  Transmission Date: 20250408
  Serious: Yes (Hospitalization, Other)
  Sender: MYLAN
  Company Number: CO-MYLANLABS-2024M1098609

PATIENT
  Age: 3 Year
  Sex: Female
  Weight: 7 kg

DRUGS (17)
  1. CYSTAGON [Suspect]
     Active Substance: CYSTEAMINE BITARTRATE
     Indication: Cystinosis
     Dosage: 150 MILLIGRAM, Q6H (DILUTE 1 CAPSULE IN 10CC WATER, ADMINISTER 9CC EVERY 6 HOURS)
     Dates: start: 20240425
  2. CYSTAGON [Suspect]
     Active Substance: CYSTEAMINE BITARTRATE
     Dosage: 130 MILLIGRAM, Q6H (EVERY 6 HOURS, CONTINUES FOR 150 DAYS)
  3. CYSTEAMINE HYDROCHLORIDE [Suspect]
     Active Substance: CYSTEAMINE HYDROCHLORIDE
     Indication: Cystinosis
     Dosage: 2 GTT DROPS, Q6H (EVERY 6 HOURS)
     Dates: start: 20240425
  4. CYSTEAMINE HYDROCHLORIDE [Suspect]
     Active Substance: CYSTEAMINE HYDROCHLORIDE
     Dosage: 2 GTT DROPS, Q6H (EVERY 6 HOURS FOR 6 MONTHS)
     Dates: start: 20240514
  5. ENALAPRIL [Suspect]
     Active Substance: ENALAPRIL
     Indication: Product used for unknown indication
  6. CALCIUM\VITAMIN D [Concomitant]
     Active Substance: CALCIUM\VITAMIN D
     Indication: Vitamin supplementation
     Dosage: 400 MILLIGRAM, QD (PER DAY)
  7. POTASSIUM CITRATE [Concomitant]
     Active Substance: POTASSIUM CITRATE
     Indication: Vitamin supplementation
     Dosage: 10 CC/ 3 TIMES A DAY, TID
  8. POTASSIUM CITRATE [Concomitant]
     Active Substance: POTASSIUM CITRATE
  9. CALCITRIOL [Concomitant]
     Active Substance: CALCITRIOL
     Indication: Vitamin supplementation
     Dosage: 0.58 MICROGRAM, QD (PER DAY)
  10. CALCITRIOL [Concomitant]
     Active Substance: CALCITRIOL
     Dosage: 0.25 MICROGRAM, QD (DAY)
  11. CALCITRIOL [Concomitant]
     Active Substance: CALCITRIOL
     Dosage: UNK, QD (1 CC, PER DAY)
  12. POTASSIUM GLUCONATE [Concomitant]
     Active Substance: POTASSIUM GLUCONATE
     Indication: Vitamin supplementation
     Dosage: (3 CC/3 TIMES A DAY), TID
  13. POTASSIUM GLUCONATE [Concomitant]
     Active Substance: POTASSIUM GLUCONATE
     Dosage: (31 PERCENT AT A DOSE OF 10 CC/3 TIMES A DAY), TID
  14. CALCIUM BICARBONATE [Concomitant]
     Active Substance: CALCIUM BICARBONATE
     Indication: Vitamin supplementation
     Dosage: 600 MILLIGRAM, QD (DAY)
  15. LEVOCARNITINE [Concomitant]
     Active Substance: LEVOCARNITINE
     Dosage: UNK, BID (5 CC PER 12 HOUR)
  16. CALCIUM CARBONATE [Concomitant]
     Active Substance: CALCIUM CARBONATE
     Indication: Malnutrition
     Dosage: UNK, BID (2.5 CC, 12 HR)
  17. ENALAPRIL MALEATE [Concomitant]
     Active Substance: ENALAPRIL MALEATE
     Indication: Product used for unknown indication
     Dosage: UNK, BID (1 CC PER 12 HOURS)

REACTIONS (8)
  - Pneumonia bacterial [Recovering/Resolving]
  - Dehydration [Recovered/Resolved]
  - Urinary retention [Recovered/Resolved]
  - Vomiting [Recovered/Resolved]
  - Diarrhoea [Recovered/Resolved]
  - Decreased appetite [Recovered/Resolved]
  - Chronic obstructive pulmonary disease [Unknown]
  - Amino acid level increased [Not Recovered/Not Resolved]

NARRATIVE: CASE EVENT DATE: 20240101
